FAERS Safety Report 14478446 (Version 2)
Quarter: 2018Q2

REPORT INFORMATION
  Report Type: Spontaneous
  Country: US (occurrence: US)
  Receive Date: 20180202
  Receipt Date: 20180605
  Transmission Date: 20180711
  Serious: Yes (Other)
  Sender: FDA-Public Use
  Company Number: US-ASTRAZENECA-2018SE12566

PATIENT
  Age: 26619 Day
  Sex: Male
  Weight: 113.4 kg

DRUGS (120)
  1. CELEBREX [Concomitant]
     Active Substance: CELECOXIB
     Indication: PAIN
     Dates: start: 2017
  2. MYLANTA [Concomitant]
     Active Substance: ALUMINUM HYDROXIDE\DIMETHICONE\MAGNESIUM HYDROXIDE
     Dosage: 3 TO 4 PILLS DAILY
  3. LOSARTAN POTASSIUM. [Concomitant]
     Active Substance: LOSARTAN POTASSIUM
     Route: 048
     Dates: start: 20170727
  4. TRICOR [Concomitant]
     Active Substance: FENOFIBRATE
     Route: 048
     Dates: start: 20150112
  5. TIOTROPIUM BROMIDE [Concomitant]
     Active Substance: TIOTROPIUM BROMIDE
     Route: 048
     Dates: start: 20161228
  6. FINASTERIDE. [Concomitant]
     Active Substance: FINASTERIDE
     Route: 048
     Dates: start: 20170629
  7. LEVOFLOXACIN. [Concomitant]
     Active Substance: LEVOFLOXACIN
     Dosage: 500.0MG UNKNOWN
     Route: 048
     Dates: start: 20160328
  8. LANTUS SOLOSTAR [Concomitant]
     Active Substance: INSULIN GLARGINE
     Dates: start: 20140911
  9. AVODART [Concomitant]
     Active Substance: DUTASTERIDE
     Dosage: 0.5MG UNKNOWN
     Route: 048
     Dates: start: 20100115
  10. KEFLEX [Concomitant]
     Active Substance: CEPHALEXIN
     Dosage: 750.0MG UNKNOWN
     Route: 048
     Dates: start: 20080725
  11. METOPROLOL TARTRATE. [Concomitant]
     Active Substance: METOPROLOL TARTRATE
     Dosage: 50.0MG UNKNOWN
     Route: 048
     Dates: start: 20040802
  12. LYRICA [Concomitant]
     Active Substance: PREGABALIN
     Route: 048
     Dates: start: 20151012
  13. LEVETIRACETAM. [Concomitant]
     Active Substance: LEVETIRACETAM
     Dosage: 500.0MG UNKNOWN
     Route: 048
     Dates: start: 20091124
  14. GLIPIZIDE. [Concomitant]
     Active Substance: GLIPIZIDE
     Route: 048
     Dates: start: 20090601
  15. PENICILLIN V POTASSIUM. [Concomitant]
     Active Substance: PENICILLIN V POTASSIUM
     Route: 048
     Dates: start: 20120730
  16. METOLAZONE. [Concomitant]
     Active Substance: METOLAZONE
     Route: 048
     Dates: start: 20170216
  17. AMOXICILLIN. [Concomitant]
     Active Substance: AMOXICILLIN
     Indication: ANTIBIOTIC THERAPY
  18. SUCRALFATE. [Concomitant]
     Active Substance: SUCRALFATE
     Dosage: 1.0G UNKNOWN
     Route: 048
     Dates: start: 20160129
  19. SKELAXIN [Concomitant]
     Active Substance: METAXALONE
     Dosage: 800.0MG UNKNOWN
     Route: 048
     Dates: start: 20100527
  20. VIAGRA [Concomitant]
     Active Substance: SILDENAFIL CITRATE
     Dosage: 100.0MG UNKNOWN
     Route: 048
     Dates: start: 20100304
  21. REPAGLINIDE. [Concomitant]
     Active Substance: REPAGLINIDE
     Dosage: 1.0MG UNKNOWN
     Route: 048
     Dates: start: 20100304
  22. NASONEX [Concomitant]
     Active Substance: MOMETASONE FUROATE
     Dosage: SPRAY
     Dates: start: 20091209
  23. FERREX [Concomitant]
     Active Substance: FERRIC POLYSACCHARIDE COMPLEX
     Route: 048
     Dates: start: 20091116
  24. METHOCARBAMOL. [Concomitant]
     Active Substance: METHOCARBAMOL
     Dosage: 500.0MG UNKNOWN
     Route: 048
     Dates: start: 20110705
  25. LISINOPRIL. [Concomitant]
     Active Substance: LISINOPRIL
     Dosage: 20.0MG UNKNOWN
     Route: 048
     Dates: start: 20021203
  26. BUPROPION HYDROCHLORIDE. [Concomitant]
     Active Substance: BUPROPION HYDROCHLORIDE
     Route: 048
     Dates: start: 20170220
  27. CETIRIZINE HYDROCHLORIDE. [Concomitant]
     Active Substance: CETIRIZINE HYDROCHLORIDE
     Route: 048
     Dates: start: 20130516
  28. DEXAMETHASONE + TOBRAMYCIN SULFATE [Concomitant]
     Route: 047
     Dates: start: 20130516
  29. FUROSEMIDE. [Concomitant]
     Active Substance: FUROSEMIDE
     Route: 048
     Dates: start: 20111214
  30. TESSALON [Concomitant]
     Active Substance: BENZONATATE
     Route: 048
     Dates: start: 20120817
  31. NEXIUM [Suspect]
     Active Substance: ESOMEPRAZOLE MAGNESIUM
     Indication: GASTROOESOPHAGEAL REFLUX DISEASE
     Route: 048
     Dates: start: 20110104
  32. BUMEX [Concomitant]
     Active Substance: BUMETANIDE
     Indication: FLUID RETENTION
     Dates: start: 2017
  33. TIOTROPIUM BROMIDE [Concomitant]
     Active Substance: TIOTROPIUM BROMIDE
     Route: 048
     Dates: start: 20170706
  34. RAPAFLO [Concomitant]
     Active Substance: SILODOSIN
     Dosage: 8.0MG UNKNOWN
     Route: 048
     Dates: start: 20170209
  35. RAPAFLO [Concomitant]
     Active Substance: SILODOSIN
     Dosage: 8.0MG UNKNOWN
     Route: 048
     Dates: start: 20150117
  36. LORATADINE. [Concomitant]
     Active Substance: LORATADINE
     Route: 048
     Dates: start: 20080826
  37. AMLODIPINE BESYLATE. [Concomitant]
     Active Substance: AMLODIPINE BESYLATE
     Route: 048
     Dates: start: 20170112
  38. AMITIZA [Concomitant]
     Active Substance: LUBIPROSTONE
     Dosage: 24.0UG UNKNOWN
     Route: 048
     Dates: start: 20090907
  39. DIOVAN [Concomitant]
     Active Substance: VALSARTAN
     Dosage: 320.0MG UNKNOWN
     Route: 048
     Dates: start: 20100306
  40. REPAGLINIDE. [Concomitant]
     Active Substance: REPAGLINIDE
     Dosage: 1.0MG UNKNOWN
     Route: 048
     Dates: start: 20091002
  41. BACTROBAN [Concomitant]
     Active Substance: MUPIROCIN\MUPIROCIN CALCIUM
     Route: 061
     Dates: start: 20080625
  42. ACTOS [Concomitant]
     Active Substance: PIOGLITAZONE HYDROCHLORIDE
     Dosage: 15.0MG UNKNOWN
     Route: 048
     Dates: start: 20071205
  43. NIACIN. [Concomitant]
     Active Substance: NIACIN
     Dosage: 2 TABLETS ORALLY EVERY NIGHT AT BEDTIME
     Route: 048
     Dates: start: 20090601
  44. GABAPENTIN. [Concomitant]
     Active Substance: GABAPENTIN
     Dosage: 300.0MG UNKNOWN
     Route: 048
     Dates: start: 20061109
  45. GABAPENTIN. [Concomitant]
     Active Substance: GABAPENTIN
     Dosage: 300.0MG UNKNOWN
     Route: 048
     Dates: start: 20080824
  46. METHYLPREDNISOLONE. [Concomitant]
     Active Substance: METHYLPREDNISOLONE
     Dosage: TAKE AS DIRECTED WITH FOOD
     Route: 048
     Dates: start: 20140115
  47. LUBIPROSTONE [Concomitant]
     Active Substance: LUBIPROSTONE
     Route: 048
     Dates: start: 20130815
  48. ZANTAC [Concomitant]
     Active Substance: RANITIDINE HYDROCHLORIDE
  49. SIMVASTATIN. [Concomitant]
     Active Substance: SIMVASTATIN
     Route: 048
     Dates: start: 20170727
  50. PLAVIX [Concomitant]
     Active Substance: CLOPIDOGREL BISULFATE
     Route: 048
     Dates: start: 20170629
  51. FLUTICASONE. [Concomitant]
     Active Substance: FLUTICASONE
     Dosage: TAKE PUFF BY MOUTH TWICE A DAY
     Dates: start: 20140120
  52. SITAGLIPTIN PHOSPHATE [Concomitant]
     Active Substance: SITAGLIPTIN PHOSPHATE
     Route: 048
     Dates: start: 20161230
  53. LEVOFLOXACIN. [Concomitant]
     Active Substance: LEVOFLOXACIN
     Dosage: 250.0MG UNKNOWN
     Route: 048
     Dates: start: 20080918
  54. DIOVAN [Concomitant]
     Active Substance: VALSARTAN
     Dosage: 160.0MG UNKNOWN
     Route: 048
     Dates: start: 20081128
  55. CIPROFLOXACIN HYDROCHLORIDE. [Concomitant]
     Active Substance: CIPROFLOXACIN HYDROCHLORIDE
     Dosage: 500.0MG UNKNOWN
     Route: 048
     Dates: start: 20090807
  56. DICYCLOMINE HCL [Concomitant]
     Active Substance: DICYCLOMINE HYDROCHLORIDE
     Route: 048
     Dates: start: 20090807
  57. KEFLEX [Concomitant]
     Active Substance: CEPHALEXIN
     Dosage: 750.0MG UNKNOWN
     Route: 048
     Dates: start: 20130603
  58. MECLIZINE HCL [Concomitant]
     Active Substance: MECLIZINE HYDROCHLORIDE
     Dosage: 12.5MG UNKNOWN
     Route: 048
     Dates: start: 20081207
  59. LISINOPRIL. [Concomitant]
     Active Substance: LISINOPRIL
     Dosage: 10.0MG UNKNOWN
     Route: 048
     Dates: start: 20030604
  60. PENTOXIFYLLINE. [Concomitant]
     Active Substance: PENTOXIFYLLINE
     Dosage: 400.0MG UNKNOWN
     Route: 048
     Dates: start: 20030324
  61. VALACICLOVIR HYDROCHLORIDE [Concomitant]
     Active Substance: VALACYCLOVIR HYDROCHLORIDE
     Route: 048
     Dates: start: 20150714
  62. ULTRAM [Concomitant]
     Active Substance: TRAMADOL HYDROCHLORIDE
     Dosage: 50.0MG EVERY 8 - 12 HOURS
     Route: 048
     Dates: start: 20130609
  63. NEXIUM [Suspect]
     Active Substance: ESOMEPRAZOLE MAGNESIUM
     Indication: GASTROOESOPHAGEAL REFLUX DISEASE
     Route: 048
     Dates: start: 2007, end: 2017
  64. PROTONIX [Suspect]
     Active Substance: PANTOPRAZOLE SODIUM
     Route: 065
  65. CALCIFEROL [Concomitant]
     Active Substance: ERGOCALCIFEROL
     Dosage: ONE CAPSULE BY MOUTH EVERY WEEK
     Route: 048
     Dates: start: 20170706
  66. MONTELUKAST SODIUM. [Concomitant]
     Active Substance: MONTELUKAST SODIUM
     Route: 048
     Dates: start: 20170112
  67. MONTELUKAST SODIUM. [Concomitant]
     Active Substance: MONTELUKAST SODIUM
     Route: 048
     Dates: start: 20130626
  68. FLUTICASONE. [Concomitant]
     Active Substance: FLUTICASONE
     Dosage: 500-50 MCG TAKE PUFF BY MOUTH TWICE A DAY
     Dates: start: 20170110
  69. AMITRIPTYLINE HYDROCHLORIDE. [Concomitant]
     Active Substance: AMITRIPTYLINE HYDROCHLORIDE
     Dosage: 10.0MG UNKNOWN
     Route: 048
     Dates: start: 20150812
  70. NASONEX [Concomitant]
     Active Substance: MOMETASONE FUROATE
     Dosage: SPRAY
     Dates: start: 20100220
  71. STARLIX [Concomitant]
     Active Substance: NATEGLINIDE
     Route: 048
     Dates: start: 20090916
  72. AZITHROMYCIN ANHYDROUS. [Concomitant]
     Active Substance: AZITHROMYCIN ANHYDROUS
     Dosage: 250.0UG UNKNOWN
     Route: 048
     Dates: start: 20081224
  73. DOCUSATE SODIUM. [Concomitant]
     Active Substance: DOCUSATE SODIUM
     Route: 048
     Dates: start: 20160203
  74. MELOXICAM. [Concomitant]
     Active Substance: MELOXICAM
     Route: 048
     Dates: start: 20050829
  75. ROFECOXIB [Concomitant]
     Active Substance: ROFECOXIB
     Dosage: 25.0MG UNKNOWN
     Route: 048
     Dates: start: 20030604
  76. GUAIFENESIN. [Concomitant]
     Active Substance: GUAIFENESIN
     Route: 048
     Dates: start: 20141020
  77. NEXIUM [Suspect]
     Active Substance: ESOMEPRAZOLE MAGNESIUM
     Indication: GASTROOESOPHAGEAL REFLUX DISEASE
     Dosage: GENERIC
     Route: 048
     Dates: start: 2007, end: 2017
  78. CARVEDILOL. [Concomitant]
     Active Substance: CARVEDILOL
     Route: 048
     Dates: start: 20170727
  79. LORATADINE. [Concomitant]
     Active Substance: LORATADINE
     Route: 048
     Dates: start: 20170112
  80. SALMETEROL [Concomitant]
     Active Substance: SALMETEROL
     Dosage: 500-50 MCG TAKE PUFF BY MOUTH TWICE A DAY
     Dates: start: 20170110
  81. ACETAMINOPHEN AND CODEINE [Concomitant]
     Active Substance: ACETAMINOPHEN\CODEINE PHOSPHATE
     Dosage: 300 TO 30 MG
     Route: 048
     Dates: start: 20160315
  82. DICLOFENAC SODIUM. [Concomitant]
     Active Substance: DICLOFENAC SODIUM
     Route: 048
     Dates: start: 20150320
  83. HUMALOG KWIKPEN [Concomitant]
     Active Substance: INSULIN LISPRO
     Dosage: U 100
     Dates: start: 20140911
  84. AMITIZA [Concomitant]
     Active Substance: LUBIPROSTONE
     Dosage: 24.0UG UNKNOWN
     Route: 048
     Dates: start: 20100620
  85. SKELAXIN [Concomitant]
     Active Substance: METAXALONE
     Dosage: 800.0MG UNKNOWN
     Route: 048
     Dates: start: 20081116
  86. FINACEA [Concomitant]
     Active Substance: AZELAIC ACID
     Dosage: 15 % GEL
     Route: 061
     Dates: start: 20100206
  87. TRIAMCINOLONE ACETONIDE. [Concomitant]
     Active Substance: TRIAMCINOLONE ACETONIDE
     Route: 061
     Dates: start: 20091202
  88. TUSSIONEX PENNKINETIC [Concomitant]
     Active Substance: CHLORPHENIRAMINE\HYDROCODONE
     Dates: start: 20081224
  89. FLOMAX [Concomitant]
     Active Substance: TAMSULOSIN HYDROCHLORIDE
     Dosage: 0.4MG UNKNOWN
     Route: 048
     Dates: start: 20071116
  90. ROSIGLITAZONE MALEATE. [Concomitant]
     Active Substance: ROSIGLITAZONE MALEATE
     Dosage: 4.0MG UNKNOWN
     Route: 048
     Dates: start: 20070131
  91. VALACICLOVIR HYDROCHLORIDE [Concomitant]
     Active Substance: VALACYCLOVIR HYDROCHLORIDE
     Route: 048
     Dates: start: 20120916
  92. HYDROCODONE BIT/ACETAMINOPHEN [Concomitant]
     Route: 048
     Dates: start: 20121007
  93. DIAZEPAM. [Concomitant]
     Active Substance: DIAZEPAM
     Dosage: 30 MINUTES BEFORE SURGERY
     Route: 048
     Dates: start: 20101228
  94. PRILOSEC [Suspect]
     Active Substance: OMEPRAZOLE MAGNESIUM
     Route: 048
  95. DEXILANT [Suspect]
     Active Substance: DEXLANSOPRAZOLE
     Route: 065
  96. ZEGERID [Suspect]
     Active Substance: OMEPRAZOLE\SODIUM BICARBONATE
     Route: 065
  97. ASPIRIN. [Concomitant]
     Active Substance: ASPIRIN
     Indication: ANTICOAGULANT THERAPY
  98. ACETAMINOPHEN. [Concomitant]
     Active Substance: ACETAMINOPHEN
     Indication: PAIN
  99. TUMS [Concomitant]
     Active Substance: CALCIUM CARBONATE
     Dosage: 3 TO 4 PILLS DAILY
  100. ROLAIDS [Concomitant]
     Active Substance: CALCIUM CARBONATE\MAGNESIUM HYDROXIDE
     Dosage: 3 TO 4 PILLS DAILY
  101. TRICOR [Concomitant]
     Active Substance: FENOFIBRATE
     Route: 048
     Dates: start: 20170727
  102. CARVEDILOL. [Concomitant]
     Active Substance: CARVEDILOL
     Route: 048
     Dates: start: 20170312
  103. FINASTERIDE. [Concomitant]
     Active Substance: FINASTERIDE
     Route: 048
     Dates: start: 20130618
  104. ATORVASTATIN CALCIUM. [Concomitant]
     Active Substance: ATORVASTATIN CALCIUM
     Route: 048
     Dates: start: 20161208
  105. LANTUS SOLOSTAR [Concomitant]
     Active Substance: INSULIN GLARGINE
     Dates: start: 20161225
  106. UROXATRAL [Concomitant]
     Active Substance: ALFUZOSIN HYDROCHLORIDE
     Dosage: 10.0MG UNKNOWN
     Route: 048
     Dates: start: 20080407
  107. ROFECOXIB [Concomitant]
     Active Substance: ROFECOXIB
     Dosage: 25.0MG UNKNOWN
     Route: 048
     Dates: start: 20030604
  108. ALBUTEROL SULFATE. [Concomitant]
     Active Substance: ALBUTEROL SULFATE
     Dates: start: 20160329
  109. TESSALON [Concomitant]
     Active Substance: BENZONATATE
     Dosage: 100.0MG EVERY 8 - 12 HOURS
     Route: 048
     Dates: start: 20131210
  110. PREVACID [Suspect]
     Active Substance: LANSOPRAZOLE
     Route: 065
  111. LOSARTAN POTASSIUM. [Concomitant]
     Active Substance: LOSARTAN POTASSIUM
     Route: 048
     Dates: start: 20160308
  112. METOPROLOL SUCCINATE. [Concomitant]
     Active Substance: METOPROLOL SUCCINATE
     Dosage: 50.0MG UNKNOWN
     Route: 048
     Dates: start: 20080902
  113. FLOMAX [Concomitant]
     Active Substance: TAMSULOSIN HYDROCHLORIDE
     Dosage: TAKE 2 CAPSULES ORALLY EVERY DAY AFTER EVENING MEAL UNKNOWN
     Route: 048
     Dates: start: 20041214
  114. PRAVASTATIN SODIUM. [Concomitant]
     Active Substance: PRAVASTATIN SODIUM
     Route: 048
     Dates: start: 20040802
  115. LYRICA [Concomitant]
     Active Substance: PREGABALIN
     Route: 048
     Dates: start: 20150914
  116. ROFECOXIB [Concomitant]
     Active Substance: ROFECOXIB
     Dosage: 25.0MG UNKNOWN
     Route: 048
     Dates: start: 20030825
  117. CEFDINIR. [Concomitant]
     Active Substance: CEFDINIR
     Route: 048
     Dates: start: 20150720
  118. OSELTAMIVIR PHOSPHATE. [Concomitant]
     Active Substance: OSELTAMIVIR PHOSPHATE
     Route: 048
     Dates: start: 20110228
  119. FUROSEMIDE. [Concomitant]
     Active Substance: FUROSEMIDE
     Route: 048
     Dates: start: 20151013
  120. GLYNASE [Concomitant]
     Active Substance: GLYBURIDE
     Dosage: 3.0MG UNKNOWN
     Route: 048
     Dates: start: 19961028

REACTIONS (12)
  - Cardiac failure congestive [Unknown]
  - Renal failure [Unknown]
  - Myocardial infarction [Unknown]
  - Kidney infection [Unknown]
  - Thrombotic microangiopathy [Unknown]
  - Chronic kidney disease [Unknown]
  - Constipation [Unknown]
  - Obesity [Unknown]
  - Renal injury [Unknown]
  - Neoplasm malignant [Unknown]
  - Cardiac failure [Unknown]
  - Benign prostatic hyperplasia [Unknown]

NARRATIVE: CASE EVENT DATE: 20110913
